FAERS Safety Report 19452745 (Version 1)
Quarter: 2021Q2

REPORT INFORMATION
  Report Type: Report from Study
  Country: PL (occurrence: PL)
  Receive Date: 20210623
  Receipt Date: 20210623
  Transmission Date: 20210717
  Serious: Yes (Other)
  Sender: FDA-Public Use
  Company Number: NVSC2021PL131822

PATIENT

DRUGS (1)
  1. METFORMIN [Suspect]
     Active Substance: METFORMIN HYDROCHLORIDE
     Indication: PRODUCT USED FOR UNKNOWN INDICATION
     Dosage: UNK
     Route: 065

REACTIONS (8)
  - Pollakiuria [Unknown]
  - Fatigue [Unknown]
  - Vision blurred [Unknown]
  - Appetite disorder [Unknown]
  - Mental disorder [Recovering/Resolving]
  - Lethargy [Unknown]
  - Thirst [Unknown]
  - Diabetes mellitus inadequate control [Unknown]
